FAERS Safety Report 17989741 (Version 2)
Quarter: 2020Q4

REPORT INFORMATION
  Report Type: Spontaneous
  Country: US (occurrence: US)
  Receive Date: 20200707
  Receipt Date: 20201217
  Transmission Date: 20210113
  Serious: Yes (Hospitalization, Other)
  Sender: FDA-Public Use
  Company Number: US-APOTEX-2020AP012798

PATIENT
  Age: 63 Year
  Sex: Female

DRUGS (3)
  1. ESCITALOPRAM [Concomitant]
     Active Substance: ESCITALOPRAM OXALATE
     Indication: MAJOR DEPRESSION
     Dosage: UNK
     Route: 065
  2. FENTANYL. [Suspect]
     Active Substance: FENTANYL
     Indication: BACK PAIN
     Dosage: UNK
     Route: 065
  3. LINEZOLID. [Interacting]
     Active Substance: LINEZOLID
     Indication: STAPHYLOCOCCAL INFECTION
     Dosage: 600 MILLIGRAM, Q.12H
     Route: 048

REACTIONS (2)
  - Drug interaction [Unknown]
  - Serotonin syndrome [Recovered/Resolved]
